FAERS Safety Report 4758535-8 (Version None)
Quarter: 2005Q3

REPORT INFORMATION
  Report Type: 
  Country: None (occurrence: None)
  Receive Date: 20050826
  Receipt Date: 20050817
  Transmission Date: 20060218
  Serious: Yes (Other)
  Sender: FDA-Public Use
  Company Number: STA-AE-05-MTX-016

PATIENT
  Age: 51 Year
  Sex: Female

DRUGS (17)
  1. METHOTREXATE [Suspect]
     Indication: RHEUMATOID ARTHRITIS
     Dosage: 20 MG - 1XW - ORAL
     Route: 048
     Dates: start: 20040621
  2. ABATACEPT [Suspect]
     Indication: RHEUMATOID ARTHRITIS
     Dosage: 750 MG - IV
     Route: 042
     Dates: start: 20050420, end: 20050713
  3. INFLIXIMAB [Suspect]
     Indication: RHEUMATOID ARTHRITIS
     Dosage: IV
     Route: 042
     Dates: start: 20050420, end: 20050713
  4. PLACEBO [Suspect]
     Indication: RHEUMATOID ARTHRITIS
     Dates: start: 20050420, end: 20050713
  5. FOLIC ACID [Concomitant]
  6. PREDNISONE [Concomitant]
  7. RANITIDINE [Concomitant]
  8. AMLODIPINE [Concomitant]
  9. METHYLDOPA [Concomitant]
  10. CAPTOPRIL [Concomitant]
  11. METRONIDAZOLE [Concomitant]
  12. IBUPROFEN [Concomitant]
  13. AMITRIPTYLINE HCL [Concomitant]
  14. PROPANOLOL (PROPANOLOL HCL) [Concomitant]
  15. HYDROCHLOROTHIAZIDE [Concomitant]
  16. SECNIDAZOLE (SECNIDAZOLE) [Concomitant]
  17. TERBINAFINE HCL [Concomitant]

REACTIONS (3)
  - ANAL HAEMORRHAGE [None]
  - MALIGNANT ANORECTAL NEOPLASM [None]
  - PROCTALGIA [None]
